FAERS Safety Report 6550655-0 (Version None)
Quarter: 2010Q1

REPORT INFORMATION
  Report Type: 
  Country: None (occurrence: None)
  Receive Date: 20100125
  Receipt Date: 20090720
  Transmission Date: 20100710
  Serious: No
  Sender: FDA-Public Use
  Company Number: US-TYCO HEALTHCARE/MALLINCKRODT-T200901385

PATIENT
  Sex: Female

DRUGS (2)
  1. OPTIRAY 350 [Suspect]
     Indication: COMPUTERISED TOMOGRAM
     Dosage: 75 ML, SINGLE
     Route: 042
     Dates: start: 20090720, end: 20090720
  2. OTHER ANTIHYPERTENSIVES [Concomitant]

REACTIONS (2)
  - EYE PRURITUS [None]
  - EYE SWELLING [None]
